FAERS Safety Report 6764050-2 (Version None)
Quarter: 2010Q2

REPORT INFORMATION
  Report Type: 
  Country: None (occurrence: None)
  Receive Date: 20100610
  Receipt Date: 20100608
  Transmission Date: 20101027
  Serious: Yes (Life-Threatening)
  Sender: FDA-Public Use
  Company Number: IT-JNJFOC-20100602691

PATIENT
  Age: 82 Year
  Sex: Female

DRUGS (4)
  1. RISPERDAL [Suspect]
     Indication: DEMENTIA
     Route: 048
  2. FUROSEMIDE [Concomitant]
     Indication: DRUG USE FOR UNKNOWN INDICATION
  3. TELMISARTAN [Concomitant]
  4. CITALOPRAM [Concomitant]

REACTIONS (2)
  - PULMONARY EMBOLISM [None]
  - PULMONARY INFARCTION [None]
